FAERS Safety Report 9305530 (Version 1)
Quarter: 2013Q2

REPORT INFORMATION
  Report Type: Spontaneous
  Country: US (occurrence: None)
  Receive Date: 20130522
  Receipt Date: 20130522
  Transmission Date: 20140414
  Serious: No
  Sender: FDA-Public Use
  Company Number: None

PATIENT
  Age: 21 Year
  Sex: Female

DRUGS (1)
  1. MAKENA [Suspect]
     Indication: PREMATURE LABOUR
     Route: 030
     Dates: start: 201303, end: 201304

REACTIONS (7)
  - Injection site pain [None]
  - Injection site pain [None]
  - Malaise [None]
  - Nausea [None]
  - Injection site erythema [None]
  - Injection site inflammation [None]
  - Injection site pruritus [None]
